FAERS Safety Report 5208980-1 (Version None)
Quarter: 2007Q1

REPORT INFORMATION
  Report Type: 
  Country: None (occurrence: None)
  Receive Date: 20070116
  Receipt Date: 20070105
  Transmission Date: 20070707
  Serious: Yes (Hospitalization)
  Sender: FDA-Public Use
  Company Number: GR-GLAXOSMITHKLINE-B0450848A

PATIENT
  Age: 11 Year
  Sex: Male

DRUGS (2)
  1. AUGMENTIN '125' [Suspect]
     Indication: HEAD INJURY
     Route: 048
     Dates: start: 20061106, end: 20061109
  2. CLARITHROMYCIN [Suspect]
     Route: 048

REACTIONS (12)
  - ANAPHYLACTIC SHOCK [None]
  - BURNS SECOND DEGREE [None]
  - COUGH [None]
  - DIARRHOEA [None]
  - HYPERSENSITIVITY [None]
  - PNEUMONIA [None]
  - PNEUMONIA MYCOPLASMAL [None]
  - PYREXIA [None]
  - RASH MACULO-PAPULAR [None]
  - RASH VESICULAR [None]
  - STEVENS-JOHNSON SYNDROME [None]
  - TOXIC EPIDERMAL NECROLYSIS [None]
